FAERS Safety Report 9027833 (Version 1)
Quarter: 2020Q3

REPORT INFORMATION
  Report Type: Spontaneous
  Country: BE (occurrence: BE)
  Receive Date: 20130124
  Receipt Date: 20130124
  Transmission Date: 20201105
  Serious: Yes (Hospitalization)
  Sender: FDA-Public Use
  Company Number: BE-JNJFOC-20130108310

PATIENT
  Age: 78 Year
  Sex: Male
  Weight: 70 kg

DRUGS (9)
  1. REMINYL [Suspect]
     Active Substance: GALANTAMINE
     Indication: MEMORY IMPAIRMENT
     Route: 065
     Dates: start: 201107, end: 20110814
  2. DALCETRAPIB. [Suspect]
     Active Substance: DALCETRAPIB
     Indication: ACUTE CORONARY SYNDROME
     Route: 048
     Dates: start: 20110814
  3. ASAFLOW [Concomitant]
     Active Substance: ASPIRIN
     Indication: CARDIOVASCULAR EVENT PROPHYLAXIS
     Route: 065
     Dates: start: 20090429
  4. OMEPRAZOLE. [Concomitant]
     Active Substance: OMEPRAZOLE
     Route: 065
     Dates: start: 20041231
  5. LISINOPRIL. [Concomitant]
     Active Substance: LISINOPRIL
     Indication: HYPERTENSION
     Route: 065
     Dates: start: 20110524
  6. DALCETRAPIB. [Suspect]
     Active Substance: DALCETRAPIB
     Indication: ACUTE CORONARY SYNDROME
     Route: 048
     Dates: start: 20091228
  7. SILODOSIN. [Concomitant]
     Active Substance: SILODOSIN
     Route: 065
     Dates: start: 20110512
  8. LIPITOR [Concomitant]
     Active Substance: ATORVASTATIN CALCIUM
     Route: 065
     Dates: start: 20090629
  9. SELECTOL [Concomitant]
     Active Substance: CELIPROLOL
     Indication: HYPERTENSION
     Route: 065
     Dates: start: 20090623

REACTIONS (4)
  - Fatigue [Recovered/Resolved]
  - Hyperhidrosis [Unknown]
  - Weight decreased [Unknown]
  - Decreased appetite [Unknown]

NARRATIVE: CASE EVENT DATE: 20110715
